FAERS Safety Report 22199963 (Version 1)
Quarter: 2023Q2

REPORT INFORMATION
  Report Type: Spontaneous
  Country: US (occurrence: US)
  Receive Date: 20230412
  Receipt Date: 20230412
  Transmission Date: 20230722
  Serious: No
  Sender: FDA-Public Use
  Company Number: US-SA-SAC20230410001184

PATIENT
  Sex: Female

DRUGS (25)
  1. DUPIXENT [Suspect]
     Active Substance: DUPILUMAB
     Indication: Dermatitis atopic
     Dosage: 300 MG, QOW
     Route: 058
     Dates: start: 20200911
  2. ALBUTEROL SULFATE [Concomitant]
     Active Substance: ALBUTEROL SULFATE
  3. ACETAMINOPHEN\CODEINE PHOSPHATE [Concomitant]
     Active Substance: ACETAMINOPHEN\CODEINE PHOSPHATE
  4. AIMOVIG [Concomitant]
     Active Substance: ERENUMAB-AOOE
  5. BACLOFEN [Concomitant]
     Active Substance: BACLOFEN
  6. BICALUTAMIDE [Concomitant]
     Active Substance: BICALUTAMIDE
  7. FAMOTIDINE [Concomitant]
     Active Substance: FAMOTIDINE
  8. HYOSCYAMINE [Concomitant]
     Active Substance: HYOSCYAMINE
  9. MEMANTINE [Concomitant]
     Active Substance: MEMANTINE
  10. METHOTREXATE [Concomitant]
     Active Substance: METHOTREXATE
  11. MISOPROSTOL [Concomitant]
     Active Substance: MISOPROSTOL
  12. OMEPRAZOLE [Concomitant]
     Active Substance: OMEPRAZOLE
  13. PREDNISONE [Concomitant]
     Active Substance: PREDNISONE
  14. PROMETHAZINE [Concomitant]
     Active Substance: PROMETHAZINE HYDROCHLORIDE
  15. SOLIFENACIN [Concomitant]
     Active Substance: SOLIFENACIN
  16. SYNTHROID [Concomitant]
     Active Substance: LEVOTHYROXINE SODIUM
  17. UBRELVY [Concomitant]
     Active Substance: UBROGEPANT
  18. XIFAXAN [Concomitant]
     Active Substance: RIFAXIMIN
  19. LACTASE [Concomitant]
     Active Substance: LACTASE
  20. AMITRIPTYLINE [Concomitant]
     Active Substance: AMITRIPTYLINE
  21. HYDROXYZINE HYDROCHLORIDE [Concomitant]
     Active Substance: HYDROXYZINE HYDROCHLORIDE
  22. HYOSCYAMINE [Concomitant]
     Active Substance: HYOSCYAMINE
  23. METHYLPREDNISOLONE [Concomitant]
     Active Substance: METHYLPREDNISOLONE
  24. SPIRONOLACTONE [Concomitant]
     Active Substance: SPIRONOLACTONE
  25. TRIAMCINOLONE ACETONIDE [Concomitant]
     Active Substance: TRIAMCINOLONE ACETONIDE

REACTIONS (2)
  - Sleep disorder [Unknown]
  - Dermatitis atopic [Unknown]
